FAERS Safety Report 7303707-1 (Version None)
Quarter: 2011Q1

REPORT INFORMATION
  Report Type: 
  Country: None (occurrence: None)
  Receive Date: 20110221
  Receipt Date: 20110215
  Transmission Date: 20110831
  Serious: Yes (Other)
  Sender: FDA-Public Use
  Company Number: US-ROCHE-734487

PATIENT
  Sex: Male
  Weight: 97.5 kg

DRUGS (3)
  1. ACCUTANE [Suspect]
     Indication: ACNE
     Route: 065
     Dates: start: 19980101, end: 19980601
  2. ACCUTANE [Suspect]
     Route: 065
     Dates: start: 20000101, end: 20010101
  3. MINOCIN [Concomitant]
     Route: 048

REACTIONS (9)
  - COLITIS [None]
  - NAUSEA [None]
  - CROHN'S DISEASE [None]
  - RECTAL HAEMORRHAGE [None]
  - ABDOMINAL PAIN [None]
  - INFLAMMATORY BOWEL DISEASE [None]
  - ANAL FISSURE [None]
  - IRRITABLE BOWEL SYNDROME [None]
  - TIBIA FRACTURE [None]
